FAERS Safety Report 9336627 (Version 1)
Quarter: 2013Q2

REPORT INFORMATION
  Report Type: Spontaneous
  Country: US (occurrence: US)
  Receive Date: 20130607
  Receipt Date: 20130607
  Transmission Date: 20140414
  Serious: Yes (Other)
  Sender: FDA-Public Use
  Company Number: PHEH2013US011831

PATIENT
  Age: 69 Year
  Sex: 0
  Weight: 102.6 kg

DRUGS (1)
  1. EXELON PATCH [Suspect]
     Dosage: 4.6 MG, UNK
     Route: 062

REACTIONS (1)
  - Hallucination [Recovered/Resolved]
